FAERS Safety Report 25470467 (Version 1)
Quarter: 2025Q2

REPORT INFORMATION
  Report Type: Spontaneous
  Country: GB (occurrence: GB)
  Receive Date: 20250624
  Receipt Date: 20250624
  Transmission Date: 20250717
  Serious: Yes (Other)
  Sender: TEVA
  Company Number: GB-MHRA-TPP29451003C20568229YC1749828136349

PATIENT
  Age: 67 Year
  Sex: Female
  Weight: 72 kg

DRUGS (13)
  1. AMLODIPINE [Suspect]
     Active Substance: AMLODIPINE BESYLATE
     Indication: Ill-defined disorder
     Route: 048
     Dates: start: 20250522
  2. BISOPROLOL [Concomitant]
     Active Substance: BISOPROLOL
     Indication: Ill-defined disorder
     Dosage: AT NIGHT
     Route: 048
     Dates: start: 20250416
  3. LEVOTHYROXINE [Concomitant]
     Active Substance: LEVOTHYROXINE
     Indication: Ill-defined disorder
     Dosage: MONDAY TO FRIDAY
     Route: 048
     Dates: start: 20250304
  4. IBUPROFEN [Concomitant]
     Active Substance: IBUPROFEN
     Indication: Ill-defined disorder
     Route: 061
     Dates: start: 20250416, end: 20250514
  5. ONDANSETRON [Concomitant]
     Active Substance: ONDANSETRON
     Indication: Ill-defined disorder
     Route: 048
     Dates: start: 20250603, end: 20250608
  6. AMOXICILLIN [Concomitant]
     Active Substance: AMOXICILLIN
     Indication: Ill-defined disorder
     Route: 048
     Dates: start: 20250423, end: 20250428
  7. LOSARTAN [Concomitant]
     Active Substance: LOSARTAN
     Indication: Ill-defined disorder
     Route: 048
     Dates: start: 20250529
  8. OMEPRAZOLE [Concomitant]
     Active Substance: OMEPRAZOLE
     Indication: Ill-defined disorder
     Dosage: 30 MIN BEFORE A MEAL
     Route: 048
     Dates: start: 20240812
  9. ATORVASTATIN [Concomitant]
     Active Substance: ATORVASTATIN
     Indication: Ill-defined disorder
     Route: 048
     Dates: start: 20240812
  10. AMANTADINE HYDROCHLORIDE [Concomitant]
     Active Substance: AMANTADINE HYDROCHLORIDE
     Indication: Ill-defined disorder
     Dosage: 8AM  AND 8PM
     Route: 048
     Dates: start: 20240812
  11. PROCYCLIDINE [Concomitant]
     Active Substance: PROCYCLIDINE
     Indication: Ill-defined disorder
     Dates: start: 20250305
  12. MIRTAZAPINE [Concomitant]
     Active Substance: MIRTAZAPINE
     Indication: Ill-defined disorder
     Dosage: AT NIGHT
     Route: 048
     Dates: start: 20250423
  13. CARBIDOPA\LEVODOPA [Concomitant]
     Active Substance: CARBIDOPA\LEVODOPA
     Indication: Ill-defined disorder
     Route: 048
     Dates: start: 20240812

REACTIONS (1)
  - Joint swelling [Recovered/Resolved]

NARRATIVE: CASE EVENT DATE: 20250613
